FAERS Safety Report 4951545-7 (Version None)
Quarter: 2006Q1

REPORT INFORMATION
  Report Type: 
  Country: None (occurrence: None)
  Receive Date: 20060317
  Receipt Date: 20060308
  Transmission Date: 20060701
  Serious: Yes (Death, Hospitalization)
  Sender: FDA-Public Use
  Company Number: 2006034443

PATIENT
  Age: 72 Year
  Sex: Male

DRUGS (3)
  1. PREDNISOLONE [Suspect]
     Indication: RENAL TRANSPLANT
     Dosage: (1 IN 1 D)
  2. CYCLOSPORINE [Suspect]
     Indication: RENAL TRANSPLANT
     Dosage: 8 MG/KG, 1 IN 1 D)
  3. AZATHIOPRINE [Suspect]
     Indication: RENAL TRANSPLANT
     Dosage: (2 MG/KG, 1 IN 1 D)

REACTIONS (17)
  - ABDOMINAL MASS [None]
  - ABSCESS [None]
  - ACTINOMYCOSIS [None]
  - AORTIC ANEURYSM RUPTURE [None]
  - AORTIC ARTERIOSCLEROSIS [None]
  - BLADDER CANCER [None]
  - BLADDER NEOPLASM SURGERY [None]
  - C-REACTIVE PROTEIN INCREASED [None]
  - COLONIC POLYP [None]
  - CYTOMEGALOVIRUS ANTIBODY POSITIVE [None]
  - DIVERTICULUM [None]
  - GROIN PAIN [None]
  - LARGE INTESTINE ANASTOMOSIS [None]
  - MASS EXCISION [None]
  - NIGHT SWEATS [None]
  - RED BLOOD CELL SEDIMENTATION RATE INCREASED [None]
  - WEIGHT DECREASED [None]
